FAERS Safety Report 9669089 (Version 1)
Quarter: 2013Q4

REPORT INFORMATION
  Report Type: Spontaneous
  Country: GB (occurrence: GB)
  Receive Date: 20131105
  Receipt Date: 20131105
  Transmission Date: 20140711
  Serious: Yes (Hospitalization)
  Sender: FDA-Public Use
  Company Number: GB-AMGEN-GBRSP2013077054

PATIENT
  Age: 45 Year
  Sex: Female

DRUGS (11)
  1. DENOSUMAB [Suspect]
     Indication: METASTATIC PAIN
     Dosage: 120 MG, UNK
     Route: 058
     Dates: start: 20130830, end: 20130830
  2. CALCIUM [Concomitant]
     Dosage: 1 DF, QD
     Route: 042
     Dates: start: 201308
  3. CARBOPLATIN [Concomitant]
     Indication: CHEMOTHERAPY
     Dosage: UNK
     Dates: start: 20130830
  4. CYCLIZINE [Concomitant]
  5. DICLOFENAC [Concomitant]
  6. GEMCITABINE [Concomitant]
     Indication: CHEMOTHERAPY
     Dosage: UNK
     Dates: start: 20130830
  7. LANSOPRAZOLE [Concomitant]
  8. LOPERAMIDE [Concomitant]
  9. MORPHINE SULPHATE [Concomitant]
  10. ORAMORPH [Concomitant]
  11. PARACETAMOL [Concomitant]

REACTIONS (3)
  - Nausea [Unknown]
  - Paraesthesia [Unknown]
  - Hypocalcaemia [Not Recovered/Not Resolved]
